FAERS Safety Report 7095338-6 (Version None)
Quarter: 2010Q4

REPORT INFORMATION
  Report Type: 
  Country: None (occurrence: None)
  Receive Date: 20101111
  Receipt Date: 20101104
  Transmission Date: 20110411
  Serious: Yes (Death)
  Sender: FDA-Public Use
  Company Number: US-AMGEN-USASP2010003579

PATIENT

DRUGS (2)
  1. PROCRIT [Suspect]
  2. VIDAZA [Concomitant]

REACTIONS (4)
  - CARDIAC ARREST [None]
  - HYPOXIA [None]
  - MYELODYSPLASTIC SYNDROME [None]
  - RESPIRATORY ARREST [None]
